FAERS Safety Report 6226078-0 (Version None)
Quarter: 2009Q2

REPORT INFORMATION
  Report Type: 
  Country: None (occurrence: None)
  Receive Date: 20090612
  Receipt Date: 20090507
  Transmission Date: 20091009
  Serious: No
  Sender: FDA-Public Use
  Company Number: US-ABBOTT-09P-163-0572182-00

PATIENT
  Sex: Female
  Weight: 95.34 kg

DRUGS (5)
  1. HUMIRA [Suspect]
     Indication: PSORIASIS
     Route: 058
     Dates: start: 20090401
  2. HUMIRA [Suspect]
     Route: 058
     Dates: start: 20090409, end: 20090409
  3. M.V.I. [Concomitant]
     Indication: DRUG USE FOR UNKNOWN INDICATION
  4. ASPIRIN [Concomitant]
     Indication: DRUG USE FOR UNKNOWN INDICATION
  5. ANTIDEPRESSANTS [Concomitant]
     Indication: DEPRESSION

REACTIONS (1)
  - INCORRECT DRUG ADMINISTRATION DURATION [None]
